FAERS Safety Report 11290596 (Version 3)
Quarter: 2015Q4

REPORT INFORMATION
  Report Type: Report from Study
  Country: US (occurrence: US)
  Receive Date: 20150722
  Receipt Date: 20151030
  Transmission Date: 20160304
  Serious: Yes (Hospitalization)
  Sender: FDA-Public Use
  Company Number: US-AMGEN-USASP2015071442

PATIENT
  Age: 58 Year
  Sex: Male

DRUGS (2)
  1. ENBREL [Suspect]
     Active Substance: ETANERCEPT
     Indication: PSORIASIS
     Dosage: UNK UNK, QWK
     Route: 065
     Dates: start: 20120427
  2. HUMIRA [Concomitant]
     Active Substance: ADALIMUMAB
     Dosage: UNK

REACTIONS (10)
  - Injection site extravasation [Unknown]
  - Injection site haemorrhage [Unknown]
  - Pneumonia [Unknown]
  - Hypoaesthesia [Unknown]
  - Psoriasis [Unknown]
  - Injection site pain [Unknown]
  - Emphysema [Unknown]
  - Drug effect delayed [Unknown]
  - Hiatus hernia [Unknown]
  - Injection site swelling [Unknown]
